FAERS Safety Report 26217168 (Version 1)
Quarter: 2025Q4

REPORT INFORMATION
  Report Type: Spontaneous
  Country: CA (occurrence: CA)
  Receive Date: 20251231
  Receipt Date: 20251231
  Transmission Date: 20260118
  Serious: Yes (Hospitalization)
  Sender: ACCORD
  Company Number: None

PATIENT
  Age: 40 Year
  Sex: Female

DRUGS (13)
  1. DEXMEDETOMIDINE HYDROCHLORIDE [Suspect]
     Active Substance: DEXMEDETOMIDINE HYDROCHLORIDE
     Indication: Delirium
     Dosage: 1 EVERY 1 HOUR
  2. QUETIAPINE [Suspect]
     Active Substance: QUETIAPINE
     Indication: Agitation
  3. DEXAMETHASONE [Suspect]
     Active Substance: DEXAMETHASONE
     Indication: Pelvic pain
  4. FENTANYL [Suspect]
     Active Substance: FENTANYL
     Indication: Pelvic pain
  5. HYDROMORPHONE [Suspect]
     Active Substance: HYDROMORPHONE
     Indication: Pelvic pain
  6. KETAMINE [Suspect]
     Active Substance: KETAMINE
     Indication: Pelvic pain
  7. KETOROLAC [Suspect]
     Active Substance: KETOROLAC TROMETHAMINE
     Indication: Pelvic pain
  8. LORAZEPAM [Suspect]
     Active Substance: LORAZEPAM
     Indication: Agitation
  9. LOXAPINE [Suspect]
     Active Substance: LOXAPINE
     Indication: Agitation
  10. METHADONE [Suspect]
     Active Substance: METHADONE HYDROCHLORIDE
     Indication: Pelvic pain
     Dosage: 1 EVERY 8 HOUR
     Route: 048
  11. OLANZAPINE [Suspect]
     Active Substance: OLANZAPINE
     Indication: Agitation
  12. PHENOBARBITAL [Suspect]
     Active Substance: PHENOBARBITAL
     Indication: Agitation
     Route: 058
  13. METHADONE [Suspect]
     Active Substance: METHADONE HYDROCHLORIDE
     Indication: Pelvic pain
     Dosage: 1 EVERY 8 HOUR
     Route: 048

REACTIONS (2)
  - Drug ineffective [Unknown]
  - Dysphoria [Unknown]
